FAERS Safety Report 10842238 (Version 1)
Quarter: 2015Q1

REPORT INFORMATION
  Report Type: Spontaneous
  Country: US (occurrence: US)
  Receive Date: 20150220
  Receipt Date: 20150220
  Transmission Date: 20150721
  Serious: No
  Sender: FDA-Public Use
  Company Number: US-TEVA-521623USA

PATIENT
  Sex: Female

DRUGS (1)
  1. FLUOCINONIDE. [Suspect]
     Active Substance: FLUOCINONIDE

REACTIONS (6)
  - Stasis dermatitis [Unknown]
  - Burning sensation [Unknown]
  - Skin irritation [Unknown]
  - Hair growth abnormal [Unknown]
  - Pruritus [Unknown]
  - Adverse event [Unknown]

NARRATIVE: CASE EVENT DATE: 201309
